FAERS Safety Report 4990009-1 (Version None)
Quarter: 2006Q2

REPORT INFORMATION
  Report Type: 
  Country: None (occurrence: None)
  Receive Date: 20060427
  Receipt Date: 20060417
  Transmission Date: 20061013
  Serious: Yes (Hospitalization)
  Sender: FDA-Public Use
  Company Number: JP-INTERMUNE-200512IM0008

PATIENT
  Age: 68 Year
  Sex: Male
  Weight: 67.4 kg

DRUGS (22)
  1. INTERFERON AFLACON-1 (INTERFERON ALFACON-1) [Suspect]
     Indication: HEPATITIS C
     Dosage: SEE IMAGE
     Route: 058
     Dates: start: 20040518, end: 20040525
  2. INTERFERON AFLACON-1 (INTERFERON ALFACON-1) [Suspect]
     Indication: HEPATITIS C
     Dosage: SEE IMAGE
     Route: 058
     Dates: start: 20040528, end: 20041101
  3. LOXONIN [Concomitant]
  4. SELBEX [Concomitant]
  5. LENDORMIN [Concomitant]
  6. EXCELASE [Concomitant]
  7. ORACEF [Concomitant]
  8. MIYA-BM [Concomitant]
  9. LOXOPROFEN SODIUM [Concomitant]
  10. ACETYLSALICYLIC ACID SRT [Concomitant]
  11. MUCOSTA [Concomitant]
  12. URINORM [Concomitant]
  13. PRONASE [Concomitant]
  14. SODIUM BICARBONATE [Concomitant]
  15. GASCON [Concomitant]
  16. GLUCAGON [Concomitant]
  17. ISODINE [Concomitant]
  18. XYLOCAINE [Concomitant]
  19. STERICLON [Concomitant]
  20. XYLOCAIN VISCOS [Concomitant]
  21. TIMOPTIC [Concomitant]
  22. TATHION [Concomitant]

REACTIONS (11)
  - ARTHRALGIA [None]
  - COLON CANCER [None]
  - COUGH [None]
  - DISTURBANCE IN ATTENTION [None]
  - HEADACHE [None]
  - MYALGIA [None]
  - NEUTROPENIA [None]
  - PHARYNGOLARYNGEAL PAIN [None]
  - PYREXIA [None]
  - SLEEP DISORDER [None]
  - THROMBOCYTOPENIA [None]
